FAERS Safety Report 21037584 (Version 3)
Quarter: 2022Q3

REPORT INFORMATION
  Report Type: Spontaneous
  Country: FR (occurrence: FR)
  Receive Date: 20220704
  Receipt Date: 20220801
  Transmission Date: 20221026
  Serious: Yes (Life-Threatening, Other)
  Sender: FDA-Public Use
  Company Number: FR-ABBVIE-22K-056-4455413-00

PATIENT
  Age: 51 Year
  Sex: Female

DRUGS (15)
  1. DEPAKOTE [Suspect]
     Active Substance: DIVALPROEX SODIUM
     Indication: Fibromyalgia
     Route: 048
     Dates: end: 20220605
  2. FENOFIBRATE [Suspect]
     Active Substance: FENOFIBRATE
     Indication: Product used for unknown indication
     Route: 048
     Dates: end: 20220605
  3. TRAMADOL HYDROCHLORIDE [Suspect]
     Active Substance: TRAMADOL HYDROCHLORIDE
     Indication: Product used for unknown indication
     Dosage: LP 100/ D
     Route: 065
     Dates: end: 20220605
  4. ACETAMINOPHEN\OPIUM [Suspect]
     Active Substance: ACETAMINOPHEN\OPIUM
     Indication: Product used for unknown indication
     Dosage: 500 MG/25 MG, DOSE 500MG/ 25 MG  INTO 3/J
     Route: 065
     Dates: end: 20220605
  5. BISOPROLOL FUMARATE\HYDROCHLOROTHIAZIDE [Concomitant]
     Active Substance: BISOPROLOL FUMARATE\HYDROCHLOROTHIAZIDE
     Indication: Product used for unknown indication
     Dosage: 2.5MG
     Dates: end: 20220605
  6. OXAZEPAM [Concomitant]
     Active Substance: OXAZEPAM
     Indication: Fibromyalgia
     Route: 048
     Dates: end: 20220605
  7. STELARA [Concomitant]
     Active Substance: USTEKINUMAB
     Indication: Rheumatic disorder
     Dates: end: 202203
  8. CYMBALTA [Concomitant]
     Active Substance: DULOXETINE HYDROCHLORIDE
     Indication: Fibromyalgia
     Route: 048
     Dates: end: 20220605
  9. FUROSEMIDE [Concomitant]
     Active Substance: FUROSEMIDE
     Indication: Product used for unknown indication
     Dates: end: 20220605
  10. TRIMEPRAZINE [Concomitant]
     Active Substance: TRIMEPRAZINE
     Indication: Depression
     Dates: end: 20220605
  11. IMOVANE [Concomitant]
     Active Substance: ZOPICLONE
     Indication: Depression
     Dates: end: 20220605
  12. PACLITAXEL [Concomitant]
     Active Substance: PACLITAXEL
     Indication: Breast cancer
     Dates: start: 202101, end: 20220404
  13. ESOMEPRAZOLE [Concomitant]
     Active Substance: ESOMEPRAZOLE
     Indication: Product used for unknown indication
  14. AMISULPRIDE [Concomitant]
     Active Substance: AMISULPRIDE
     Indication: Fibromyalgia
     Dates: end: 20220605
  15. SPIRONOLACTONE [Concomitant]
     Active Substance: SPIRONOLACTONE
     Indication: Product used for unknown indication
     Dates: end: 20220605

REACTIONS (1)
  - Pancreatitis acute [Not Recovered/Not Resolved]

NARRATIVE: CASE EVENT DATE: 20220603
